FAERS Safety Report 8525765-9 (Version None)
Quarter: 2012Q3

REPORT INFORMATION
  Report Type: 
  Country: None (occurrence: None)
  Receive Date: 20120720
  Receipt Date: 20120710
  Transmission Date: 20120928
  Serious: Yes (Hospitalization, Other)
  Sender: FDA-Public Use
  Company Number: US-009507513-1111USA00240

PATIENT

DRUGS (12)
  1. FOSAMAX [Suspect]
     Dosage: 70 MG, UNK
     Route: 048
     Dates: start: 20010709, end: 20060101
  2. FOSAMAX [Suspect]
     Dosage: UNK
  3. FOSAMAX [Suspect]
     Dosage: 70 MG, UNK
     Route: 048
     Dates: start: 20091109
  4. FOSAMAX [Suspect]
     Dosage: UNK
  5. ALENDRONATE SODIUM [Suspect]
     Dosage: 70 MG, QW
     Dates: start: 20080401
  6. FOSAMAX [Suspect]
     Dosage: UNK
     Dates: start: 19980101
  7. BONIVA [Suspect]
     Indication: OSTEOPENIA
  8. FOSAMAX [Suspect]
     Dosage: 70 MG, UNK
     Route: 048
     Dates: start: 20080911, end: 20091101
  9. BONIVA [Suspect]
     Indication: OSTEOPOROSIS
     Dosage: 150 MG, UNK
     Dates: start: 20060201, end: 20061101
  10. FOSAMAX [Suspect]
     Indication: OSTEOPOROSIS
     Dosage: 10 MG, UNK
     Route: 048
     Dates: start: 20000501, end: 20010301
  11. FOSAMAX [Suspect]
     Route: 048
     Dates: start: 20061101, end: 20080501
  12. FOSAMAX [Suspect]
     Dosage: 70 MG, UNK
     Route: 048
     Dates: start: 20080522, end: 20080901

REACTIONS (56)
  - FEMUR FRACTURE [None]
  - INTERVERTEBRAL DISC DEGENERATION [None]
  - VENOUS INSUFFICIENCY [None]
  - INSOMNIA [None]
  - CYSTOCELE [None]
  - HYPERLIPIDAEMIA [None]
  - GALLBLADDER DISORDER [None]
  - PAIN [None]
  - TENDON DISORDER [None]
  - FOOT FRACTURE [None]
  - MENINGIOMA [None]
  - URINARY TRACT INFECTION [None]
  - BLADDER DISORDER [None]
  - ANXIETY [None]
  - HYPERTENSION [None]
  - UTERINE DISORDER [None]
  - FALL [None]
  - SYNCOPE [None]
  - CHEST PAIN [None]
  - FIBROMYALGIA [None]
  - ARTHRITIS [None]
  - ARTHRALGIA [None]
  - BLOOD CHOLESTEROL INCREASED [None]
  - ANKLE FRACTURE [None]
  - MIGRAINE [None]
  - DEHYDRATION [None]
  - BACK PAIN [None]
  - DIARRHOEA [None]
  - LIGAMENT SPRAIN [None]
  - OSTEOARTHRITIS [None]
  - VERTIGO [None]
  - SYNOVIAL CYST [None]
  - GOITRE [None]
  - HYPERKERATOSIS [None]
  - MUSCLE STRAIN [None]
  - GAIT DISTURBANCE [None]
  - GASTROOESOPHAGEAL REFLUX DISEASE [None]
  - SPINAL OSTEOARTHRITIS [None]
  - LUMBAR SPINAL STENOSIS [None]
  - ASTHENIA [None]
  - DYSURIA [None]
  - LOW TURNOVER OSTEOPATHY [None]
  - DIABETES MELLITUS [None]
  - FIBULA FRACTURE [None]
  - INTERVERTEBRAL DISC PROTRUSION [None]
  - PYELONEPHRITIS [None]
  - CATARACT [None]
  - OEDEMA PERIPHERAL [None]
  - ABDOMINAL DISTENSION [None]
  - HEADACHE [None]
  - RECTOCELE [None]
  - POLYURIA [None]
  - HYPOLIPIDAEMIA [None]
  - GASTROINTESTINAL DISORDER [None]
  - BURSITIS [None]
  - ATRIOVENTRICULAR BLOCK FIRST DEGREE [None]
